FAERS Safety Report 8299088-X (Version None)
Quarter: 2012Q2

REPORT INFORMATION
  Report Type: 
  Country: None (occurrence: None)
  Receive Date: 20120419
  Receipt Date: 20120418
  Transmission Date: 20120825
  Serious: Yes (Hospitalization)
  Sender: FDA-Public Use
  Company Number: CZ-AMGEN-CZECT2012022780

PATIENT
  Age: 66 Year
  Sex: Female
  Weight: 71 kg

DRUGS (5)
  1. DOXORUBICIN HCL [Concomitant]
     Dosage: UNK UNK, Q3WK
     Dates: start: 20120222
  2. CYCLOPHOSPHAMIDE [Concomitant]
     Dosage: UNK UNK, Q3WK
     Dates: start: 20120222
  3. AMPRILAN [Concomitant]
  4. TRIAMCINOLONE [Concomitant]
     Indication: RASH
  5. PEGFILGRASTIM [Suspect]
     Indication: FEBRILE NEUTROPENIA
     Dosage: 6 MG, Q3WK
     Route: 058
     Dates: start: 20120223

REACTIONS (2)
  - CHEST PAIN [None]
  - BACK PAIN [None]
